FAERS Safety Report 4408497-8 (Version None)
Quarter: 2004Q3

REPORT INFORMATION
  Report Type: 
  Country: None (occurrence: None)
  Receive Date: 20040720
  Receipt Date: 20040629
  Transmission Date: 20050211
  Serious: Yes (Hospitalization)
  Sender: FDA-Public Use
  Company Number: 200410156BBE

PATIENT
  Age: 57 Year
  Sex: Male

DRUGS (130)
  1. HELIXATE FS [Suspect]
     Indication: FACTOR VIII DEFICIENCY
     Dates: start: 20040414, end: 20040510
  2. HELIXATE FS [Suspect]
     Indication: PLEURECTOMY
     Dates: start: 20040414, end: 20040510
  3. HELIXATE FS [Suspect]
     Indication: FACTOR VIII DEFICIENCY
     Dates: start: 20040414, end: 20040510
  4. HELIXATE FS [Suspect]
     Indication: PLEURECTOMY
     Dates: start: 20040414, end: 20040510
  5. HELIXATE FS [Suspect]
     Indication: FACTOR VIII DEFICIENCY
     Dates: start: 20040414, end: 20040510
  6. HELIXATE FS [Suspect]
     Indication: PLEURECTOMY
     Dates: start: 20040414, end: 20040510
  7. HELIXATE FS [Suspect]
     Indication: FACTOR VIII DEFICIENCY
     Dates: start: 20040414, end: 20040510
  8. HELIXATE FS [Suspect]
     Indication: PLEURECTOMY
     Dates: start: 20040414, end: 20040510
  9. HELIXATE FS [Suspect]
     Indication: FACTOR VIII DEFICIENCY
     Dates: start: 20040414, end: 20040510
  10. HELIXATE FS [Suspect]
     Indication: PLEURECTOMY
     Dates: start: 20040414, end: 20040510
  11. HELIXATE FS [Suspect]
     Indication: FACTOR VIII DEFICIENCY
     Dates: start: 20040414, end: 20040510
  12. HELIXATE FS [Suspect]
     Indication: PLEURECTOMY
     Dates: start: 20040414, end: 20040510
  13. HELIXATE FS [Suspect]
     Indication: FACTOR VIII DEFICIENCY
     Dates: start: 20040414, end: 20040510
  14. HELIXATE FS [Suspect]
     Indication: PLEURECTOMY
     Dates: start: 20040414, end: 20040510
  15. HELIXATE FS [Suspect]
     Indication: FACTOR VIII DEFICIENCY
     Dates: start: 20040414, end: 20040510
  16. HELIXATE FS [Suspect]
     Indication: PLEURECTOMY
     Dates: start: 20040414, end: 20040510
  17. HELIXATE FS [Suspect]
     Indication: FACTOR VIII DEFICIENCY
     Dates: start: 20040414, end: 20040510
  18. HELIXATE FS [Suspect]
     Indication: PLEURECTOMY
     Dates: start: 20040414, end: 20040510
  19. HELIXATE FS [Suspect]
     Indication: FACTOR VIII DEFICIENCY
     Dates: start: 20040414, end: 20040510
  20. HELIXATE FS [Suspect]
     Indication: PLEURECTOMY
     Dates: start: 20040414, end: 20040510
  21. HELIXATE FS [Suspect]
     Indication: FACTOR VIII DEFICIENCY
     Dates: start: 20040414, end: 20040510
  22. HELIXATE FS [Suspect]
     Indication: PLEURECTOMY
     Dates: start: 20040414, end: 20040510
  23. HELIXATE FS [Suspect]
     Indication: FACTOR VIII DEFICIENCY
     Dates: start: 20040414, end: 20040510
  24. HELIXATE FS [Suspect]
     Indication: PLEURECTOMY
     Dates: start: 20040414, end: 20040510
  25. HELIXATE FS [Suspect]
     Indication: FACTOR VIII DEFICIENCY
     Dates: start: 20040414, end: 20040510
  26. HELIXATE FS [Suspect]
     Indication: PLEURECTOMY
     Dates: start: 20040414, end: 20040510
  27. HELIXATE FS [Suspect]
     Indication: FACTOR VIII DEFICIENCY
     Dates: start: 20040414, end: 20040510
  28. HELIXATE FS [Suspect]
     Indication: PLEURECTOMY
     Dates: start: 20040414, end: 20040510
  29. HELIXATE FS [Suspect]
     Indication: FACTOR VIII DEFICIENCY
     Dates: start: 20040414, end: 20040510
  30. HELIXATE FS [Suspect]
     Indication: PLEURECTOMY
     Dates: start: 20040414, end: 20040510
  31. HELIXATE FS [Suspect]
     Indication: FACTOR VIII DEFICIENCY
     Dates: start: 20040414, end: 20040510
  32. HELIXATE FS [Suspect]
     Indication: PLEURECTOMY
     Dates: start: 20040414, end: 20040510
  33. HELIXATE FS [Suspect]
     Indication: FACTOR VIII DEFICIENCY
     Dates: start: 20040414, end: 20040510
  34. HELIXATE FS [Suspect]
     Indication: PLEURECTOMY
     Dates: start: 20040414, end: 20040510
  35. HELIXATE FS [Suspect]
     Indication: FACTOR VIII DEFICIENCY
     Dates: start: 20040414, end: 20040510
  36. HELIXATE FS [Suspect]
     Indication: PLEURECTOMY
     Dates: start: 20040414, end: 20040510
  37. HELIXATE FS [Suspect]
     Indication: FACTOR VIII DEFICIENCY
     Dates: start: 20040414, end: 20040510
  38. HELIXATE FS [Suspect]
     Indication: PLEURECTOMY
     Dates: start: 20040414, end: 20040510
  39. HELIXATE FS [Suspect]
     Indication: FACTOR VIII DEFICIENCY
     Dates: start: 20040414, end: 20040510
  40. HELIXATE FS [Suspect]
     Indication: PLEURECTOMY
     Dates: start: 20040414, end: 20040510
  41. HELIXATE FS [Suspect]
     Indication: FACTOR VIII DEFICIENCY
     Dates: start: 20040414, end: 20040510
  42. HELIXATE FS [Suspect]
     Indication: PLEURECTOMY
     Dates: start: 20040414, end: 20040510
  43. HELIXATE FS [Suspect]
     Indication: FACTOR VIII DEFICIENCY
     Dates: start: 20040414, end: 20040510
  44. HELIXATE FS [Suspect]
     Indication: PLEURECTOMY
     Dates: start: 20040414, end: 20040510
  45. HELIXATE FS [Suspect]
     Indication: FACTOR VIII DEFICIENCY
     Dates: start: 20040414, end: 20040510
  46. HELIXATE FS [Suspect]
     Indication: PLEURECTOMY
     Dates: start: 20040414, end: 20040510
  47. . [Concomitant]
  48. . [Concomitant]
  49. . [Concomitant]
  50. . [Concomitant]
  51. . [Concomitant]
  52. . [Concomitant]
  53. . [Concomitant]
  54. . [Concomitant]
  55. . [Concomitant]
  56. . [Concomitant]
  57. . [Concomitant]
  58. . [Concomitant]
  59. . [Concomitant]
  60. . [Concomitant]
  61. . [Concomitant]
  62. . [Concomitant]
  63. . [Concomitant]
  64. . [Concomitant]
  65. . [Concomitant]
  66. . [Concomitant]
  67. . [Concomitant]
  68. . [Concomitant]
  69. . [Concomitant]
  70. HELIXATE FS [Suspect]
     Dates: start: 20040414, end: 20040510
  71. HELIXATE FS [Suspect]
     Dates: start: 20040414, end: 20040510
  72. . [Concomitant]
  73. HELIXATE FS [Suspect]
     Dates: start: 20040414, end: 20040510
  74. HELIXATE FS [Suspect]
     Dates: start: 20040414, end: 20040510
  75. HELIXATE FS [Suspect]
     Dates: start: 20040414, end: 20040510
  76. HELIXATE FS [Suspect]
     Dates: start: 20040414, end: 20040510
  77. HELIXATE FS [Suspect]
     Dates: start: 20040414, end: 20040510
  78. HELIXATE FS [Suspect]
     Dates: start: 20040414, end: 20040510
  79. HELIXATE FS [Suspect]
     Dates: start: 20040414, end: 20040510
  80. HELIXATE FS [Suspect]
     Dates: start: 20040414, end: 20040510
  81. HELIXATE FS [Suspect]
     Dates: start: 20040414, end: 20040510
  82. HELIXATE FS [Suspect]
     Dates: start: 20040414, end: 20040510
  83. HELIXATE FS [Suspect]
     Dates: start: 20040414, end: 20040510
  84. HELIXATE FS [Suspect]
     Dates: start: 20040414, end: 20040510
  85. HELIXATE FS [Suspect]
     Dates: start: 20040414, end: 20040510
  86. HELIXATE FS [Suspect]
     Dates: start: 20040414, end: 20040510
  87. HELIXATE FS [Suspect]
     Dates: start: 20040414, end: 20040510
  88. HELIXATE FS [Suspect]
     Dates: start: 20040414, end: 20040510
  89. HELIXATE FS [Suspect]
     Dates: start: 20040414, end: 20040510
  90. HELIXATE FS [Suspect]
     Dates: start: 20040414, end: 20040510
  91. HELIXATE FS [Suspect]
     Dates: start: 20040414, end: 20040510
  92. HELIXATE FS [Suspect]
     Dates: start: 20040414, end: 20040510
  93. HELIXATE FS [Suspect]
     Dates: start: 20040414, end: 20040510
  94. HELIXATE FS [Suspect]
     Dates: start: 20040414, end: 20040510
  95. HELIXATE FS [Suspect]
     Dates: start: 20040414, end: 20040510
  96. . [Concomitant]
  97. . [Concomitant]
  98. . [Concomitant]
  99. . [Concomitant]
  100. . [Concomitant]
  101. . [Concomitant]
  102. . [Concomitant]
  103. . [Concomitant]
  104. . [Concomitant]
  105. . [Concomitant]
  106. . [Concomitant]
  107. . [Concomitant]
  108. . [Concomitant]
  109. . [Concomitant]
  110. . [Concomitant]
  111. . [Concomitant]
  112. . [Concomitant]
  113. . [Concomitant]
  114. . [Concomitant]
  115. . [Concomitant]
  116. . [Concomitant]
  117. . [Concomitant]
  118. . [Concomitant]
  119. . [Concomitant]
  120. SUFENTA [Concomitant]
  121. DIPRIVAN [Concomitant]
  122. TRACRIUM ^BURROUGHS WELLCOME^ [Concomitant]
  123. EPHEDRINE [Concomitant]
  124. KETAMINE HCL [Concomitant]
  125. ACUPAN [Concomitant]
  126. SOPHIDONE [Concomitant]
  127. MORPHINE SULFATE [Concomitant]
  128. DOLIPRANE [Concomitant]
  129. RIVOTRIL [Concomitant]
  130. RED BLOOD CELL CONCENTRATES [Concomitant]

REACTIONS (4)
  - ACUTE RESPIRATORY DISTRESS SYNDROME [None]
  - INTERSTITIAL LUNG DISEASE [None]
  - MONOCYTOSIS [None]
  - PNEUMONIA [None]
